FAERS Safety Report 11445527 (Version 3)
Quarter: 2015Q4

REPORT INFORMATION
  Report Type: Spontaneous
  Country: US (occurrence: US)
  Receive Date: 20150902
  Receipt Date: 20151117
  Transmission Date: 20160304
  Serious: Yes (Hospitalization, Other)
  Sender: FDA-Public Use
  Company Number: US-PFIZER INC-2015288670

PATIENT
  Age: 86 Year
  Sex: Female
  Weight: 59 kg

DRUGS (4)
  1. REVATIO [Suspect]
     Active Substance: SILDENAFIL CITRATE
     Indication: DYSPNOEA
     Dosage: 20 MG, 3X/DAY
  2. AMBIEN [Concomitant]
     Active Substance: ZOLPIDEM TARTRATE
     Indication: SLEEP DISORDER
     Dosage: 10 MG, 1X/DAY (1 AT BEDTIME)
  3. LORTAB [Concomitant]
     Active Substance: ACETAMINOPHEN\HYDROCODONE BITARTRATE
     Indication: PAIN
     Dosage: 5-750 AS NEEDED
  4. REVATIO [Suspect]
     Active Substance: SILDENAFIL CITRATE
     Indication: LUNG DISORDER
     Dosage: 20 MG, 2X/DAY

REACTIONS (6)
  - Heart valve incompetence [Not Recovered/Not Resolved]
  - Spinal fracture [Not Recovered/Not Resolved]
  - Weight fluctuation [Not Recovered/Not Resolved]
  - Cardiac failure congestive [Not Recovered/Not Resolved]
  - Fluid retention [Not Recovered/Not Resolved]
  - Unresponsive to stimuli [Not Recovered/Not Resolved]

NARRATIVE: CASE EVENT DATE: 201411
